FAERS Safety Report 10253397 (Version 1)
Quarter: 2014Q2

REPORT INFORMATION
  Report Type: Spontaneous
  Country: US (occurrence: None)
  Receive Date: 20140619
  Receipt Date: 20140619
  Transmission Date: 20141212
  Serious: Yes (Disabling)
  Sender: FDA-Public Use
  Company Number: None

PATIENT
  Age: 58 Year
  Sex: Female
  Weight: 68.95 kg

DRUGS (10)
  1. OMEPRAZOLE DR [Suspect]
     Indication: ABDOMINAL PAIN UPPER
     Dosage: 1 CAPSULE ONCE DAILY BEFORE A MEAL BY MOUTH
     Route: 048
     Dates: start: 20140418, end: 20140505
  2. OMEPRAZOLE DR [Suspect]
     Indication: GASTRIC PH DECREASED
     Dosage: 1 CAPSULE ONCE DAILY BEFORE A MEAL BY MOUTH
     Route: 048
     Dates: start: 20140418, end: 20140505
  3. LEXAPRO [Concomitant]
  4. OMEPRAZOLE [Concomitant]
  5. CALCIUM/MAGNESIUM [Concomitant]
  6. COQ10 [Concomitant]
  7. B VITAMIN [Concomitant]
  8. VALACYCLVIR [Concomitant]
  9. PRILOSEC [Concomitant]
  10. VALTREX [Concomitant]

REACTIONS (3)
  - Mood altered [None]
  - Anxiety [None]
  - Depression [None]
